FAERS Safety Report 8792955 (Version 1)
Quarter: 2012Q4

REPORT INFORMATION
  Report Type: Report from Study
  Country: CL (occurrence: CL)
  Receive Date: 20120918
  Receipt Date: 20120918
  Transmission Date: 20130627
  Serious: Yes (Hospitalization)
  Sender: FDA-Public Use
  Company Number: CL-ROCHE-1101060

PATIENT
  Age: 73 Year
  Sex: Male
  Weight: 70 kg

DRUGS (5)
  1. XELODA [Suspect]
     Indication: COLON CANCER
     Dosage: 2000 mg in the morning and 1500 mg in the night for 14 days.
     Route: 048
     Dates: start: 20120801, end: 20120913
  2. XELODA [Suspect]
     Route: 065
     Dates: start: 20120704, end: 20120713
  3. ENALAPRIL [Concomitant]
     Route: 065
     Dates: start: 2011
  4. ATENOLOL [Concomitant]
     Route: 065
     Dates: start: 2011
  5. ASPIRIN [Concomitant]
     Route: 065
     Dates: start: 2011

REACTIONS (3)
  - Diarrhoea [Recovering/Resolving]
  - Diarrhoea [Not Recovered/Not Resolved]
  - Hiccups [Not Recovered/Not Resolved]
